FAERS Safety Report 9475220 (Version 1)
Quarter: 2013Q3

REPORT INFORMATION
  Report Type: Spontaneous
  Country: CA (occurrence: CA)
  Receive Date: 20130825
  Receipt Date: 20130825
  Transmission Date: 20140515
  Serious: Yes (Death, Congenital Anomaly)
  Sender: FDA-Public Use
  Company Number: CA-MYLANLABS-2013S1018206

PATIENT
  Sex: 0

DRUGS (2)
  1. METHOTREXATE [Suspect]
     Indication: UNWANTED PREGNANCY
     Dosage: 50 MG/M2
     Route: 064
  2. MISOPROSTOL [Suspect]
     Indication: UNWANTED PREGNANCY
     Dosage: 800 MICROG
     Route: 064

REACTIONS (15)
  - Teratogenicity [Fatal]
  - Foetal growth restriction [Not Recovered/Not Resolved]
  - Microcephaly [Not Recovered/Not Resolved]
  - Hypertelorism of orbit [Not Recovered/Not Resolved]
  - Low set ears [Not Recovered/Not Resolved]
  - Micrognathia [Not Recovered/Not Resolved]
  - Hand deformity [Not Recovered/Not Resolved]
  - Clinodactyly [Not Recovered/Not Resolved]
  - Umbilical cord abnormality [Not Recovered/Not Resolved]
  - Nose deformity [Not Recovered/Not Resolved]
  - Congenital oral malformation [Not Recovered/Not Resolved]
  - Congenital foot malformation [Not Recovered/Not Resolved]
  - Rib deformity [Not Recovered/Not Resolved]
  - Spinal deformity [Not Recovered/Not Resolved]
  - Foetal exposure during pregnancy [Not Recovered/Not Resolved]
